FAERS Safety Report 4460868-X (Version None)
Quarter: 2004Q3

REPORT INFORMATION
  Report Type: 
  Country: None (occurrence: None)
  Receive Date: 20040928
  Receipt Date: 20040601
  Transmission Date: 20050211
  Serious: No
  Sender: FDA-Public Use
  Company Number: US-GLAXOSMITHKLINE-A0512870A

PATIENT
  Sex: Female

DRUGS (3)
  1. ADVAIR DISKUS 100/50 [Suspect]
     Dosage: 1PUFF TWICE PER DAY
     Route: 055
     Dates: start: 20040521
  2. ALBUTEROL [Concomitant]
  3. METHYLPREDNISOLONE [Concomitant]

REACTIONS (5)
  - BACK PAIN [None]
  - FEELING JITTERY [None]
  - HEADACHE [None]
  - HOARSENESS [None]
  - MOUTH ULCERATION [None]
